FAERS Safety Report 5392438-3 (Version None)
Quarter: 2007Q3

REPORT INFORMATION
  Report Type: 
  Country: None (occurrence: None)
  Receive Date: 20070720
  Receipt Date: 20070711
  Transmission Date: 20080115
  Serious: Yes (Other)
  Sender: FDA-Public Use
  Company Number: US-ROCHE-506472

PATIENT
  Age: 77 Year
  Sex: Male

DRUGS (3)
  1. XELODA [Suspect]
     Indication: COLORECTAL CANCER
     Route: 048
  2. XELODA [Suspect]
     Route: 048
     Dates: start: 20070709
  3. WARFARIN SODIUM [Concomitant]
     Dosage: PATIENT STATES ON 1 MG DAILY AT BEDTIME (DOSES VARY ACCORDING TO HIS WEEKLY BLOOD TEST)

REACTIONS (2)
  - BONE DISORDER [None]
  - PALMAR-PLANTAR ERYTHRODYSAESTHESIA SYNDROME [None]
